FAERS Safety Report 11937931 (Version 12)
Quarter: 2021Q2

REPORT INFORMATION
  Report Type: Other
  Country: CA (occurrence: CA)
  Receive Date: 20160122
  Receipt Date: 20210417
  Transmission Date: 20210716
  Serious: Yes (Hospitalization, Other)
  Sender: FDA-Public Use
  Company Number: CA-ROCHE-1698822

PATIENT
  Age: 42 Year
  Sex: Male

DRUGS (24)
  1. ADVAIR HFA [Concomitant]
     Active Substance: FLUTICASONE PROPIONATE\SALMETEROL XINAFOATE
     Indication: PRODUCT USED FOR UNKNOWN INDICATION
     Dosage: 50/500 MCG
     Route: 065
  2. PREDNISONE. [Concomitant]
     Active Substance: PREDNISONE
     Indication: PRODUCT USED FOR UNKNOWN INDICATION
     Dosage: 25/125 MCG
     Route: 065
  3. XOLAIR [Suspect]
     Active Substance: OMALIZUMAB
     Route: 058
     Dates: start: 20160223
  4. XOLAIR [Suspect]
     Active Substance: OMALIZUMAB
     Route: 042
     Dates: start: 20160531
  5. TOBI PODHALER [Suspect]
     Active Substance: TOBRAMYCIN
     Indication: ASTHMA
     Dosage: PUFFS
     Route: 055
     Dates: start: 2013
  6. PULMICORT TURBUHALER [Concomitant]
     Active Substance: BUDESONIDE
     Indication: PRODUCT USED FOR UNKNOWN INDICATION
     Route: 065
  7. MENADIONE [Concomitant]
     Active Substance: MENADIONE
     Indication: PRODUCT USED FOR UNKNOWN INDICATION
     Route: 065
  8. VENTOLIN [Concomitant]
     Active Substance: ALBUTEROL SULFATE
     Indication: PRODUCT USED FOR UNKNOWN INDICATION
     Route: 065
  9. ULORIC [Concomitant]
     Active Substance: FEBUXOSTAT
     Indication: PRODUCT USED FOR UNKNOWN INDICATION
     Route: 065
  10. XOLAIR [Suspect]
     Active Substance: OMALIZUMAB
     Route: 058
     Dates: start: 20180516
  11. XOLAIR [Suspect]
     Active Substance: OMALIZUMAB
     Indication: ASTHMA
     Route: 058
     Dates: start: 20151119
  12. XOLAIR [Suspect]
     Active Substance: OMALIZUMAB
     Route: 058
     Dates: start: 20160405
  13. CREON [Concomitant]
     Active Substance: PANCRELIPASE AMYLASE\PANCRELIPASE LIPASE\PANCRELIPASE PROTEASE
     Indication: PRODUCT USED FOR UNKNOWN INDICATION
     Dosage: 25 OT
     Route: 065
  14. TOCOPHEROL [Concomitant]
     Active Substance: TOCOPHEROL
     Indication: PRODUCT USED FOR UNKNOWN INDICATION
     Route: 065
  15. ZITHROMAX [Concomitant]
     Active Substance: AZITHROMYCIN DIHYDRATE
     Indication: PRODUCT USED FOR UNKNOWN INDICATION
     Route: 065
  16. XOLAIR [Suspect]
     Active Substance: OMALIZUMAB
     Route: 042
     Dates: start: 20160920
  17. XOLAIR [Suspect]
     Active Substance: OMALIZUMAB
     Route: 042
     Dates: start: 20161005
  18. XOLAIR [Suspect]
     Active Substance: OMALIZUMAB
     Route: 042
     Dates: start: 20171128
  19. XOLAIR [Suspect]
     Active Substance: OMALIZUMAB
     Route: 058
     Dates: start: 20180404
  20. XOLAIR [Suspect]
     Active Substance: OMALIZUMAB
     Route: 058
     Dates: start: 20160517
  21. XOLAIR [Suspect]
     Active Substance: OMALIZUMAB
     Route: 042
     Dates: start: 20160907
  22. XOLAIR [Suspect]
     Active Substance: OMALIZUMAB
     Route: 058
  23. ERGOCALCIFEROL. [Concomitant]
     Active Substance: ERGOCALCIFEROL
     Indication: PRODUCT USED FOR UNKNOWN INDICATION
     Route: 065
  24. PULMOZYME [Concomitant]
     Active Substance: DORNASE ALFA
     Indication: PRODUCT USED FOR UNKNOWN INDICATION
     Route: 065

REACTIONS (11)
  - Lower respiratory tract infection [Unknown]
  - Cough [Not Recovered/Not Resolved]
  - Rubber sensitivity [Unknown]
  - Infective pulmonary exacerbation of cystic fibrosis [Unknown]
  - Sputum discoloured [Recovering/Resolving]
  - Inflammation [Unknown]
  - Pyrexia [Unknown]
  - Chest discomfort [Unknown]
  - Productive cough [Recovering/Resolving]
  - Nephrolithiasis [Unknown]
  - Rhonchi [Unknown]

NARRATIVE: CASE EVENT DATE: 20160217
